FAERS Safety Report 14057978 (Version 2)
Quarter: 2017Q4

REPORT INFORMATION
  Report Type: Spontaneous
  Country: JP (occurrence: JP)
  Receive Date: 20171006
  Receipt Date: 20171116
  Transmission Date: 20180321
  Serious: Yes (Death, Life-Threatening, Hospitalization)
  Sender: FDA-Public Use
  Company Number: JP-DSJP-DSJ-2017-113051

PATIENT

DRUGS (10)
  1. MAGLAX [Concomitant]
     Active Substance: MAGNESIUM OXIDE
     Dosage: UNK, TID, AFTER EVERY MEAL
     Route: 065
  2. NIZORAL [Concomitant]
     Active Substance: KETOCONAZOLE
     Dosage: UNK, QD
     Dates: end: 20150916
  3. NAUZELIN [Concomitant]
     Active Substance: DOMPERIDONE
     Indication: NAUSEA
     Dosage: 10 MG, QD
     Dates: end: 20150916
  4. LIXIANA TABLETS [Suspect]
     Active Substance: EDOXABAN TOSYLATE
     Indication: EMBOLISM VENOUS
  5. REBAMIPIDE [Concomitant]
     Active Substance: REBAMIPIDE
     Dosage: UNK, TID, AFTER EVERY MEAL
     Route: 065
  6. LIXIANA TABLETS [Suspect]
     Active Substance: EDOXABAN TOSYLATE
     Indication: DEEP VEIN THROMBOSIS
     Dosage: 30 MG, QD
     Route: 048
     Dates: end: 20150916
  7. OZEX                               /01070602/ [Concomitant]
     Active Substance: TOSUFLOXACIN TOSYLATE
     Dosage: 150 MG, TID
     Dates: end: 20150916
  8. CRAVIT INTRAVENOUS DRIP INFUSION [Concomitant]
     Dosage: UNK, TID
     Dates: end: 20150916
  9. SENNARIDE [Concomitant]
     Active Substance: SENNOSIDES A AND B
     Dosage: UNK, QD, BEFORE BEDTIME
     Route: 065
  10. LIRICA [Concomitant]
     Active Substance: PREGABALIN
     Dosage: 25 MG, BID
     Dates: end: 20150916

REACTIONS (4)
  - Cerebral haemorrhage [Fatal]
  - Haemorrhagic cerebral infarction [Fatal]
  - Subdural haematoma [Fatal]
  - Tonic convulsion [Recovered/Resolved]

NARRATIVE: CASE EVENT DATE: 20150917
